FAERS Safety Report 19790491 (Version 2)
Quarter: 2021Q3

REPORT INFORMATION
  Report Type: Spontaneous
  Country: US (occurrence: US)
  Receive Date: 20210906
  Receipt Date: 20210910
  Transmission Date: 20211014
  Serious: No
  Sender: FDA-Public Use
  Company Number: US-SA-2021SA290257

PATIENT
  Age: 7 Year
  Sex: Female

DRUGS (3)
  1. LANTUS SOLOSTAR [Suspect]
     Active Substance: INSULIN GLARGINE
     Dosage: DECREASED FROM 9 UNITS TO 8 UNITS FOR A WEEK
     Route: 065
  2. INSULIN LISPRO [Concomitant]
     Active Substance: INSULIN LISPRO
     Dosage: UNK UNK, QD
     Route: 065
  3. LANTUS SOLOSTAR [Suspect]
     Active Substance: INSULIN GLARGINE
     Indication: TYPE 1 DIABETES MELLITUS
     Dosage: 9 IU, QD
     Route: 065

REACTIONS (3)
  - Blood glucose abnormal [Unknown]
  - Intentional product use issue [Unknown]
  - Device issue [Unknown]
